FAERS Safety Report 9553376 (Version 1)
Quarter: 2013Q3

REPORT INFORMATION
  Report Type: Spontaneous
  Country: US (occurrence: None)
  Receive Date: 20130805
  Receipt Date: 20130805
  Transmission Date: 20140515
  Serious: Yes (Other)
  Sender: FDA-Public Use
  Company Number: AEGR000034

PATIENT
  Age: 41 Year
  Sex: Male

DRUGS (7)
  1. JUXTAPID(LOMITAPID)CAPSULE [Suspect]
     Indication: TYPE IIA HYPERLIPIDAEMIA
     Route: 048
     Dates: start: 20130401, end: 20130408
  2. NIACIN(NICOTINIC ACID) [Concomitant]
  3. LOVAZA(OMEGA-3-ACID ETHYL ESTER) [Concomitant]
  4. OMEGA 3(SALMON OIL) [Concomitant]
  5. CRESTOR(ROSUVASTATIN CALCIUM) [Concomitant]
  6. ZETIA(EZETIMIBE) [Concomitant]
  7. PLAVIX(CLOPIDOGREL BISULFATE) [Concomitant]

REACTIONS (1)
  - Angina pectoris [None]
